FAERS Safety Report 6812189-5 (Version None)
Quarter: 2010Q3

REPORT INFORMATION
  Report Type: 
  Country: None (occurrence: None)
  Receive Date: 20100701
  Receipt Date: 20100624
  Transmission Date: 20110219
  Serious: Yes (Other)
  Sender: FDA-Public Use
  Company Number: US-BAYER-201017254BCC

PATIENT
  Sex: Male

DRUGS (1)
  1. NEO-SYN REGULAR STRENGHT 1/2% [Suspect]
     Indication: TUMOUR HAEMORRHAGE
     Route: 045

REACTIONS (2)
  - NASAL CONGESTION [None]
  - NASAL POLYPS [None]
